FAERS Safety Report 5573171-1 (Version None)
Quarter: 2007Q4

REPORT INFORMATION
  Report Type: 
  Country: None (occurrence: None)
  Receive Date: 20071220
  Receipt Date: 20071206
  Transmission Date: 20080405
  Serious: Yes (Life-Threatening, Hospitalization, Disabling)
  Sender: FDA-Public Use
  Company Number: 2007P1000032

PATIENT
  Age: 53 Year
  Sex: Male

DRUGS (6)
  1. BUSULFAN (BUSULFAN) [Suspect]
     Indication: STEM CELL TRANSPLANT
     Dosage: 40 MG; QID; IV
     Route: 042
     Dates: start: 20061021, end: 20061022
  2. FLUDARABINE PHOSPHATE [Concomitant]
  3. PHENYTOIN [Concomitant]
  4. FILGRASTIM [Concomitant]
  5. METHOTREXATE [Concomitant]
  6. CYCLOSPORINE [Concomitant]

REACTIONS (6)
  - ACUTE GRAFT VERSUS HOST DISEASE [None]
  - ANOREXIA [None]
  - GAMMA-GLUTAMYLTRANSFERASE INCREASED [None]
  - MALAISE [None]
  - PNEUMONIA [None]
  - VENOOCCLUSIVE LIVER DISEASE [None]
